FAERS Safety Report 10356808 (Version 1)
Quarter: 2014Q3

REPORT INFORMATION
  Report Type: Spontaneous
  Country: US (occurrence: None)
  Receive Date: 20140730
  Receipt Date: 20140730
  Transmission Date: 20150326
  Serious: Yes (Death)
  Sender: FDA-Public Use
  Company Number: None

PATIENT
  Age: 82 Year
  Sex: Male
  Weight: 77.57 kg

DRUGS (13)
  1. BREEZE SUPPLEMENT [Concomitant]
  2. HYDROCODONE/APAP [Concomitant]
     Active Substance: ACETAMINOPHEN\HYDROCODONE
  3. ALPRAZOLAM. [Concomitant]
     Active Substance: ALPRAZOLAM
  4. MEGESTROL [Concomitant]
     Active Substance: MEGESTROL
  5. SERTRALINE [Concomitant]
     Active Substance: SERTRALINE HYDROCHLORIDE
  6. ONDANSETRON [Concomitant]
     Active Substance: ONDANSETRON
  7. METOPROLOL TARTRATE. [Concomitant]
     Active Substance: METOPROLOL TARTRATE
  8. ATORVASTATIN [Concomitant]
     Active Substance: ATORVASTATIN
  9. HALOPERIDOL. [Concomitant]
     Active Substance: HALOPERIDOL
  10. DIFICID [Suspect]
     Active Substance: FIDAXOMICIN
     Indication: CLOSTRIDIUM DIFFICILE COLITIS
     Route: 048
     Dates: start: 20140708, end: 20140715
  11. TAMULOSIN [Concomitant]
     Active Substance: TAMSULOSIN
  12. LEVOTHYROXINE [Concomitant]
     Active Substance: LEVOTHYROXINE
  13. ZINC OXIDE. [Concomitant]
     Active Substance: ZINC OXIDE

REACTIONS (5)
  - Agonal death struggle [None]
  - Diet refusal [None]
  - Death of relative [None]
  - Haematochezia [None]
  - Depression [None]

NARRATIVE: CASE EVENT DATE: 20140715
